FAERS Safety Report 16046225 (Version 1)
Quarter: 2019Q1

REPORT INFORMATION
  Report Type: Spontaneous
  Country: US (occurrence: US)
  Receive Date: 20190307
  Receipt Date: 20190307
  Transmission Date: 20190418
  Serious: No
  Sender: FDA-Public Use
  Company Number: US-ASTRAZENECA-2019SE22882

PATIENT
  Age: 20187 Day
  Sex: Male
  Weight: 83.9 kg

DRUGS (3)
  1. BYDUREON BCISE [Suspect]
     Active Substance: EXENATIDE
     Indication: TYPE 2 DIABETES MELLITUS
     Route: 058
     Dates: start: 201807
  2. GLIPIZIDE. [Concomitant]
     Active Substance: GLIPIZIDE
     Dosage: 2.5MG AS REQUIRED
  3. LANTUS [Concomitant]
     Active Substance: INSULIN GLARGINE
     Dosage: 16USP UNITS DAILY

REACTIONS (2)
  - Underdose [Unknown]
  - Injection site mass [Not Recovered/Not Resolved]

NARRATIVE: CASE EVENT DATE: 20190205
